FAERS Safety Report 4637556-X (Version None)
Quarter: 2005Q2

REPORT INFORMATION
  Report Type: 
  Country: None (occurrence: None)
  Receive Date: 20050325
  Receipt Date: 20041129
  Transmission Date: 20051028
  Serious: No
  Sender: FDA-Public Use
  Company Number: USA041184744

PATIENT
  Age: 83 Year
  Sex: Female
  Weight: 53 kg

DRUGS (1)
  1. FORTEO [Suspect]
     Indication: OSTEOPOROSIS
     Dosage: 20 UG/1 AT BEDTIME
     Dates: start: 20041117, end: 20041120

REACTIONS (4)
  - ARTHRALGIA [None]
  - DIFFICULTY IN WALKING [None]
  - MALAISE [None]
  - PAIN IN EXTREMITY [None]
